FAERS Safety Report 8738896 (Version 3)
Quarter: 2012Q4

REPORT INFORMATION
  Report Type: Report from Study
  Country: JP (occurrence: JP)
  Receive Date: 20120823
  Receipt Date: 20121026
  Transmission Date: 20130627
  Serious: Yes (Hospitalization)
  Sender: FDA-Public Use
  Company Number: JP-VERTEX PHARMACEUTICAL INC.-2012-019714

PATIENT
  Age: 70 Year
  Sex: Male

DRUGS (8)
  1. VX-950 [Suspect]
     Indication: HEPATITIS C
     Dosage: 1500 mg, qd
     Route: 048
     Dates: start: 20120704, end: 20120925
  2. REBETOL [Suspect]
     Indication: HEPATITIS C
     Dosage: 400 mg, qd
     Route: 048
     Dates: start: 20120704, end: 20120725
  3. REBETOL [Suspect]
     Dosage: 200 mg, qd
     Route: 048
     Dates: start: 20120726
  4. PEGINTRON                          /01543001/ [Suspect]
     Indication: HEPATITIS C
     Dosage: 1.5 ?g/kg, qw
     Route: 058
     Dates: start: 20120704
  5. TANATRIL [Concomitant]
     Dosage: 5 mg, qd
     Route: 048
  6. AMLODIPINE                         /00972402/ [Concomitant]
     Dosage: 5 mg, qd
     Route: 048
  7. NORVASC [Concomitant]
     Dosage: 5 mg, qd
     Route: 048
     Dates: end: 20120914
  8. NORVASC [Concomitant]
     Dosage: 2.5 mg, qd
     Route: 048
     Dates: start: 20120915, end: 20120920

REACTIONS (2)
  - Rash generalised [Recovered/Resolved]
  - Rash generalised [Recovered/Resolved]
